FAERS Safety Report 23831852 (Version 1)
Quarter: 2024Q2

REPORT INFORMATION
  Report Type: Report from Study
  Country: US (occurrence: US)
  Receive Date: 20240508
  Receipt Date: 20240508
  Transmission Date: 20240716
  Serious: Yes (Other)
  Sender: FDA-Public Use
  Company Number: US-Eisai-EC-2024-165293

PATIENT
  Age: 74 Year
  Sex: Male
  Weight: 96.1 kg

DRUGS (5)
  1. LENVIMA [Suspect]
     Active Substance: LENVATINIB
     Indication: Thyroid cancer
     Route: 048
     Dates: start: 20221216, end: 2023
  2. LENVIMA [Suspect]
     Active Substance: LENVATINIB
     Dosage: THERAPY STOPPED SOMEWHERE IN --2023
     Route: 048
     Dates: start: 20230208
  3. LENVIMA [Suspect]
     Active Substance: LENVATINIB
     Route: 048
     Dates: start: 20230328, end: 20230329
  4. LENVIMA [Suspect]
     Active Substance: LENVATINIB
     Dosage: THERAPY STOPPED SOMEWHERE IN --2023
     Route: 048
     Dates: start: 20230331
  5. LENVIMA [Suspect]
     Active Substance: LENVATINIB
     Route: 048

REACTIONS (1)
  - Cardiomyopathy [Unknown]
